FAERS Safety Report 4379117-6 (Version None)
Quarter: 2004Q2

REPORT INFORMATION
  Report Type: 
  Country: None (occurrence: None)
  Receive Date: 20040610
  Receipt Date: 20040528
  Transmission Date: 20050107
  Serious: Yes (Death)
  Sender: FDA-Public Use
  Company Number: 2004UW11265

PATIENT

DRUGS (3)
  1. DIPRIVAN [Suspect]
     Indication: CATARACT
  2. DIPRIVAN [Suspect]
     Indication: SEDATION
  3. DIPRIVAN [Suspect]
     Indication: SURGERY

REACTIONS (4)
  - ABDOMINAL PAIN [None]
  - HEPATIC FAILURE [None]
  - MULTI-ORGAN FAILURE [None]
  - RENAL FAILURE [None]
